FAERS Safety Report 9753823 (Version 2)
Quarter: 2015Q3

REPORT INFORMATION
  Report Type: Spontaneous
  Country: US (occurrence: US)
  Receive Date: 20131213
  Receipt Date: 20150805
  Transmission Date: 20151125
  Serious: No
  Sender: FDA-Public Use
  Company Number: US-GILEAD-2010-0027101

PATIENT
  Age: 69 Year
  Sex: Female
  Weight: 63.5 kg

DRUGS (19)
  1. REVATIO [Concomitant]
     Active Substance: SILDENAFIL CITRATE
  2. NIFEDICAL XL [Concomitant]
     Active Substance: NIFEDIPINE
  3. LIPITOR [Concomitant]
     Active Substance: ATORVASTATIN CALCIUM
  4. ASPIRIN. [Concomitant]
     Active Substance: ASPIRIN
  5. LEXAPRO [Concomitant]
     Active Substance: ESCITALOPRAM OXALATE
  6. CALCIUM +D [Concomitant]
     Active Substance: CALCIUM\VITAMIN D
  7. VITAMIN C [Concomitant]
     Active Substance: ASCORBIC ACID
  8. OXYGEN. [Concomitant]
     Active Substance: OXYGEN
  9. WELLBUTRIN SR [Concomitant]
     Active Substance: BUPROPION HYDROCHLORIDE
  10. FERROUS SULF [Concomitant]
  11. CENTRUM SILVER [Concomitant]
     Active Substance: VITAMINS
  12. LISINOPRIL. [Concomitant]
     Active Substance: LISINOPRIL
  13. LETAIRIS [Suspect]
     Active Substance: AMBRISENTAN
     Indication: PULMONARY ARTERIAL HYPERTENSION
     Route: 048
     Dates: start: 20070907
  14. CELEXA [Concomitant]
     Active Substance: CITALOPRAM HYDROBROMIDE
  15. NEXIUM [Concomitant]
     Active Substance: ESOMEPRAZOLE MAGNESIUM
  16. PROVIGIL [Concomitant]
     Active Substance: MODAFINIL
  17. LASIX [Concomitant]
     Active Substance: FUROSEMIDE
  18. SYNTHROID [Concomitant]
     Active Substance: LEVOTHYROXINE SODIUM
  19. RANITIDINE [Concomitant]
     Active Substance: RANITIDINE\RANITIDINE HYDROCHLORIDE

REACTIONS (1)
  - Anaemia [Unknown]
